FAERS Safety Report 25144558 (Version 2)
Quarter: 2025Q2

REPORT INFORMATION
  Report Type: Spontaneous
  Country: AU (occurrence: AU)
  Receive Date: 20250401
  Receipt Date: 20250606
  Transmission Date: 20250716
  Serious: Yes (Other)
  Sender: NOVARTIS
  Company Number: AU-002147023-NVSC2025AU027368

PATIENT
  Sex: Female

DRUGS (3)
  1. KESIMPTA [Suspect]
     Active Substance: OFATUMUMAB
     Indication: Multiple sclerosis
     Dosage: 20 MG, 28D (EVERY 28DAYS)
     Route: 058
  2. KESIMPTA [Suspect]
     Active Substance: OFATUMUMAB
     Route: 065
     Dates: start: 20250322
  3. DIMETHYLTRYPTAMINE [Concomitant]
     Active Substance: DIMETHYLTRYPTAMINE
     Indication: Product used for unknown indication
     Route: 065

REACTIONS (13)
  - Pneumonia [Unknown]
  - COVID-19 [Recovering/Resolving]
  - Lethargy [Unknown]
  - Balance disorder [Unknown]
  - Feeling abnormal [Unknown]
  - Chest pain [Unknown]
  - Chest discomfort [Unknown]
  - Asthma [Unknown]
  - Headache [Unknown]
  - Fatigue [Unknown]
  - Inappropriate schedule of product administration [Unknown]
  - Infection [Unknown]
  - Product dose omission issue [Unknown]
